FAERS Safety Report 9957929 (Version 1)
Quarter: 2014Q1

REPORT INFORMATION
  Report Type: Report from Study
  Country: US (occurrence: US)
  Receive Date: 20140304
  Receipt Date: 20140304
  Transmission Date: 20141002
  Serious: No
  Sender: FDA-Public Use
  Company Number: US-ABBVIE-13P-163-1090939-00

PATIENT
  Sex: Male
  Weight: 40.86 kg

DRUGS (5)
  1. HUMIRA [Suspect]
     Indication: CROHN^S DISEASE
     Dates: start: 201303, end: 201305
  2. HUMIRA [Suspect]
     Dates: start: 20130513
  3. METHOTREXATE [Concomitant]
     Indication: CROHN^S DISEASE
  4. CIPRO [Concomitant]
     Indication: FISTULA
  5. FLAGYL [Concomitant]
     Indication: FISTULA

REACTIONS (1)
  - Fistula [Unknown]
